FAERS Safety Report 11811541 (Version 1)
Quarter: 2015Q4

REPORT INFORMATION
  Report Type: Report from Study
  Country: US (occurrence: US)
  Receive Date: 20151208
  Receipt Date: 20151208
  Transmission Date: 20160305
  Serious: No
  Sender: FDA-Public Use
  Company Number: US-CELGENEUS-USA-2015108103

PATIENT
  Age: 49 Year

DRUGS (2)
  1. REVLIMID [Suspect]
     Active Substance: LENALIDOMIDE
     Indication: PLASMA CELL MYELOMA
     Dosage: 5.3571 MILLIGRAM
     Route: 048
  2. DEXAMETHASONE. [Concomitant]
     Active Substance: DEXAMETHASONE
     Indication: PLASMA CELL MYELOMA
     Route: 065

REACTIONS (11)
  - Paraesthesia [Unknown]
  - Dry mouth [Unknown]
  - Dysgraphia [Unknown]
  - Dry skin [Unknown]
  - Tremor [Unknown]
  - Headache [Unknown]
  - Adverse drug reaction [Unknown]
  - Dizziness [Unknown]
  - Dysgeusia [Unknown]
  - Appetite disorder [Unknown]
  - Mood altered [Unknown]
